FAERS Safety Report 5033763-5 (Version None)
Quarter: 2006Q2

REPORT INFORMATION
  Report Type: 
  Country: None (occurrence: None)
  Receive Date: 20060620
  Receipt Date: 20060601
  Transmission Date: 20061013
  Serious: Yes (Hospitalization)
  Sender: FDA-Public Use
  Company Number: CH200602001757

PATIENT
  Age: 94 Year
  Sex: Female

DRUGS (20)
  1. ZYPREXA [Suspect]
     Indication: DEMENTIA ALZHEIMER'S TYPE
     Dosage: SEE IMAGE, INTRAMUSCULAR
     Route: 030
     Dates: start: 20051021, end: 20051021
  2. ZYPREXA [Suspect]
     Indication: DEMENTIA ALZHEIMER'S TYPE
     Dosage: SEE IMAGE, INTRAMUSCULAR
     Route: 030
     Dates: start: 20051022, end: 20051023
  3. ZYPREXA [Suspect]
     Indication: DEMENTIA ALZHEIMER'S TYPE
     Dosage: SEE IMAGE, INTRAMUSCULAR
     Route: 030
     Dates: start: 20051024, end: 20051024
  4. ZYPREXA [Suspect]
     Indication: DEMENTIA ALZHEIMER'S TYPE
     Dosage: SEE IMAGE, INTRAMUSCULAR
     Route: 030
     Dates: start: 20051025, end: 20051031
  5. ZYPREXA [Suspect]
     Indication: DEMENTIA ALZHEIMER'S TYPE
     Dosage: SEE IMAGE, INTRAMUSCULAR
     Route: 030
     Dates: start: 20051101, end: 20051101
  6. ZYPREXA [Suspect]
     Indication: DEMENTIA ALZHEIMER'S TYPE
     Dosage: SEE IMAGE, INTRAMUSCULAR
     Route: 030
     Dates: start: 20051102, end: 20051102
  7. ZYPREXA [Suspect]
     Indication: DEMENTIA ALZHEIMER'S TYPE
     Dosage: SEE IMAGE, INTRAMUSCULAR
     Route: 030
     Dates: start: 20051103, end: 20051103
  8. ZYPREXA [Suspect]
     Indication: DEMENTIA ALZHEIMER'S TYPE
     Dosage: SEE IMAGE, INTRAMUSCULAR
     Route: 030
     Dates: start: 20051104, end: 20051106
  9. ZYPREXA [Suspect]
     Indication: DEMENTIA ALZHEIMER'S TYPE
     Dosage: SEE IMAGE, INTRAMUSCULAR
     Route: 030
     Dates: start: 20051107, end: 20051108
  10. ZYPREXA [Suspect]
     Indication: DEMENTIA ALZHEIMER'S TYPE
     Dosage: SEE IMAGE, INTRAMUSCULAR
     Route: 030
     Dates: start: 20051109, end: 20051109
  11. ZYPREXA [Suspect]
     Indication: DEMENTIA ALZHEIMER'S TYPE
     Dosage: SEE IMAGE, INTRAMUSCULAR
     Route: 030
     Dates: start: 20051110, end: 20051111
  12. ZYPREXA [Suspect]
     Indication: DEMENTIA ALZHEIMER'S TYPE
     Dosage: SEE IMAGE, INTRAMUSCULAR
     Route: 030
     Dates: start: 20051112, end: 20051112
  13. ZYPREXA [Suspect]
     Indication: DEMENTIA ALZHEIMER'S TYPE
     Dosage: SEE IMAGE, INTRAMUSCULAR
     Route: 030
     Dates: start: 20051113, end: 20051114
  14. ZYPREXA [Suspect]
     Indication: DEMENTIA ALZHEIMER'S TYPE
     Dosage: SEE IMAGE, INTRAMUSCULAR
     Route: 030
     Dates: start: 20051115, end: 20051121
  15. ZYPREXA [Suspect]
     Indication: DEMENTIA ALZHEIMER'S TYPE
     Dosage: SEE IMAGE, INTRAMUSCULAR
     Route: 030
     Dates: start: 20051122, end: 20051127
  16. ZYPREXA [Suspect]
     Indication: DEMENTIA ALZHEIMER'S TYPE
     Dosage: SEE IMAGE, INTRAMUSCULAR
     Route: 030
     Dates: start: 20051128, end: 20051206
  17. ZYPREXA [Suspect]
     Indication: DEMENTIA ALZHEIMER'S TYPE
     Dosage: SEE IMAGE, INTRAMUSCULAR
     Route: 030
     Dates: start: 20051207, end: 20051212
  18. ZYPREXA [Suspect]
     Indication: DEMENTIA ALZHEIMER'S TYPE
     Dosage: SEE IMAGE, INTRAMUSCULAR
     Route: 030
     Dates: start: 20051213
  19. LAMISIL (TERBINAFINE) SPRAY [Concomitant]
  20. HALDOL [Concomitant]

REACTIONS (7)
  - BLOOD CREATININE INCREASED [None]
  - CREATININE RENAL CLEARANCE DECREASED [None]
  - FALL [None]
  - RENAL FAILURE [None]
  - SEDATION [None]
  - SOMNOLENCE [None]
  - SWELLING [None]
